FAERS Safety Report 4941335-3 (Version None)
Quarter: 2006Q1

REPORT INFORMATION
  Report Type: 
  Country: None (occurrence: None)
  Receive Date: 20060310
  Receipt Date: 20060310
  Transmission Date: 20060701
  Serious: Yes (Other)
  Sender: FDA-Public Use
  Company Number: None

PATIENT
  Age: 60 Year
  Sex: Female
  Weight: 119.7496 kg

DRUGS (1)
  1. GLUCOPHAGE XR [Suspect]
     Dosage: ONE DAILY HS LIFETIME

REACTIONS (3)
  - ASTHENIA [None]
  - DIZZINESS [None]
  - LETHARGY [None]
